FAERS Safety Report 9952990 (Version 1)
Quarter: 2014Q1

REPORT INFORMATION
  Report Type: Report from Study
  Country: US (occurrence: US)
  Receive Date: 20140304
  Receipt Date: 20140304
  Transmission Date: 20141002
  Serious: No
  Sender: FDA-Public Use
  Company Number: US-ABBVIE-13P-163-1074589-00

PATIENT
  Age: 46 Year
  Sex: Male
  Weight: 108.96 kg

DRUGS (8)
  1. HUMIRA [Suspect]
     Indication: PSORIASIS
     Dates: start: 20130303, end: 20130405
  2. HUMIRA [Suspect]
     Indication: PSORIASIS
  3. BUSPAR [Concomitant]
     Indication: ANXIETY
  4. ADVIL [Concomitant]
     Indication: PAIN
  5. CLONIDINE [Concomitant]
     Indication: HYPERTENSION
  6. LOSARTAN [Concomitant]
     Indication: HYPERTENSION
  7. NESAZODONE [Concomitant]
     Indication: DEPRESSION
  8. CENTRUM SILVER [Concomitant]
     Indication: VITAMIN SUPPLEMENTATION

REACTIONS (3)
  - Feeling abnormal [Not Recovered/Not Resolved]
  - Gait disturbance [Not Recovered/Not Resolved]
  - Confusional state [Recovered/Resolved]
